FAERS Safety Report 4316687-8 (Version None)
Quarter: 2004Q1

REPORT INFORMATION
  Report Type: 
  Country: None (occurrence: None)
  Receive Date: 20040311
  Receipt Date: 20040226
  Transmission Date: 20041129
  Serious: Yes (Death)
  Sender: FDA-Public Use
  Company Number: 2004201392CO

PATIENT
  Age: 76 Year
  Sex: Male

DRUGS (1)
  1. CELEBREX [Suspect]
     Indication: DRUG USE FOR UNKNOWN INDICATION
     Dosage: 200 MG, QD; ORAL
     Route: 048

REACTIONS (1)
  - MYOCARDIAL INFARCTION [None]
